FAERS Safety Report 11934847 (Version 1)
Quarter: 2016Q1

REPORT INFORMATION
  Report Type: Spontaneous
  Country: US (occurrence: US)
  Receive Date: 20160121
  Receipt Date: 20160121
  Transmission Date: 20160526
  Serious: No
  Sender: FDA-Public Use
  Company Number: US-009507513-1601USA006905

PATIENT
  Sex: Female

DRUGS (1)
  1. NEXPLANON [Suspect]
     Active Substance: ETONOGESTREL
     Indication: CONTRACEPTION
     Dosage: 68 MG ETONOGESTREL/ONE NEXPLANON ROD
     Route: 059
     Dates: start: 201507

REACTIONS (2)
  - Menometrorrhagia [Recovered/Resolved]
  - Vaginal infection [Recovered/Resolved]
